FAERS Safety Report 9663526 (Version 1)
Quarter: 2013Q4

REPORT INFORMATION
  Report Type: Spontaneous
  Country: US (occurrence: US)
  Receive Date: 20131101
  Receipt Date: 20131101
  Transmission Date: 20140711
  Serious: No
  Sender: FDA-Public Use
  Company Number: US-ENDO PHARMACEUTICALS INC.-CLOZ20130009

PATIENT
  Sex: Male

DRUGS (1)
  1. CLONAZEPAM 1MG. ACCORD H [Suspect]
     Indication: PRODUCT USED FOR UNKNOWN INDICATION
     Dosage: 1 MG
     Route: 048

REACTIONS (3)
  - Delusion [Not Recovered/Not Resolved]
  - Psychotic disorder [Not Recovered/Not Resolved]
  - Hallucination [Not Recovered/Not Resolved]
